FAERS Safety Report 5910555-3 (Version None)
Quarter: 2008Q4

REPORT INFORMATION
  Report Type: 
  Country: None (occurrence: None)
  Receive Date: 20081007
  Receipt Date: 20080310
  Transmission Date: 20090506
  Serious: Yes (Other)
  Sender: FDA-Public Use
  Company Number: US-ASTRAZENECA-2008UW04917

PATIENT
  Age: 76 Year
  Sex: Female
  Weight: 81.6 kg

DRUGS (5)
  1. ARIMIDEX [Suspect]
     Indication: BREAST CANCER
     Route: 048
     Dates: start: 20060101
  2. LIPITOR [Concomitant]
  3. ATENOLOL [Concomitant]
     Route: 048
  4. LANOXIN [Concomitant]
  5. RADIATION THERAPY [Concomitant]

REACTIONS (3)
  - HOT FLUSH [None]
  - NIGHT SWEATS [None]
  - VAGINAL HAEMORRHAGE [None]
